FAERS Safety Report 4377149-5 (Version None)
Quarter: 2004Q2

REPORT INFORMATION
  Report Type: 
  Country: None (occurrence: None)
  Receive Date: 20040614
  Receipt Date: 20040614
  Transmission Date: 20050107
  Serious: No
  Sender: FDA-Public Use
  Company Number: None

PATIENT
  Age: 78 Year
  Sex: Female

DRUGS (15)
  1. GATIFLOXACIN [Suspect]
     Indication: CELLULITIS
     Dosage: 400 MG ONE DOSE ORAL
     Route: 048
     Dates: start: 20040609, end: 20040609
  2. AMBIEN [Concomitant]
  3. OXYCODONE [Concomitant]
  4. SENNA [Concomitant]
  5. CAPTOPRIL [Concomitant]
  6. ATORVASTATIN CALCIUM [Concomitant]
  7. ADVAIR DISKUS 100/50 [Concomitant]
  8. AMIODARONE HCL [Concomitant]
  9. SYNTHROID [Concomitant]
  10. NIFEREX [Concomitant]
  11. HYDRALAZINE [Concomitant]
  12. PIPERACILLIN/TAZOBACTAM [Concomitant]
  13. TOPROL-XL [Concomitant]
  14. RIFAMPIN [Concomitant]
  15. LASIX [Concomitant]

REACTIONS (1)
  - HYPOGLYCAEMIA [None]
